FAERS Safety Report 11427984 (Version 1)
Quarter: 2015Q3

REPORT INFORMATION
  Report Type: Spontaneous
  Country: FR (occurrence: FR)
  Receive Date: 20150828
  Receipt Date: 20150828
  Transmission Date: 20151125
  Serious: Yes (Hospitalization)
  Sender: FDA-Public Use
  Company Number: FR-009507513-1508FRA011207

PATIENT
  Sex: Male

DRUGS (3)
  1. COLCHICINE. [Concomitant]
     Active Substance: COLCHICINE
     Indication: PRODUCT USED FOR UNKNOWN INDICATION
     Dosage: 1 MG, UNK
     Route: 065
  2. DOLIPRANE [Concomitant]
     Active Substance: ACETAMINOPHEN
     Indication: PRODUCT USED FOR UNKNOWN INDICATION
     Dosage: UNK, AS REQUIRED
     Route: 065
  3. ORGARAN [Suspect]
     Active Substance: DANAPAROID SODIUM
     Indication: THROMBOSIS PROPHYLAXIS
     Dosage: DAILY DOSE: 1 DOSAGE FORMS(1 IN 1 D)
     Route: 042
     Dates: start: 20150127, end: 20150216

REACTIONS (1)
  - Cerebral haematoma [Recovering/Resolving]
